FAERS Safety Report 6262183-0 (Version None)
Quarter: 2009Q3

REPORT INFORMATION
  Report Type: 
  Country: None (occurrence: None)
  Receive Date: 20090709
  Receipt Date: 20090702
  Transmission Date: 20100115
  Serious: Yes (Death)
  Sender: FDA-Public Use
  Company Number: US-MERCK-0907USA00869

PATIENT
  Sex: Male

DRUGS (1)
  1. SINGULAIR [Suspect]
     Route: 048
     Dates: start: 20060501

REACTIONS (2)
  - DEATH [None]
  - MYOCARDIAL INFARCTION [None]
